FAERS Safety Report 4700374-8 (Version None)
Quarter: 2005Q2

REPORT INFORMATION
  Report Type: 
  Country: None (occurrence: None)
  Receive Date: 20050207
  Receipt Date: 20050207
  Transmission Date: 20051028
  Serious: No
  Sender: FDA-Public Use
  Company Number: None

PATIENT
  Sex: Female
  Weight: 71.2147 kg

DRUGS (4)
  1. PRINZIDE [Suspect]
     Indication: HYPERTENSION
     Dosage: 20/12.5MG ONE PO QD  INDEFINITELY
     Route: 048
  2. CRESTOR [Concomitant]
  3. FOSAMAX [Concomitant]
  4. PREMARIN [Concomitant]

REACTIONS (2)
  - DRUG INEFFECTIVE [None]
  - THERAPEUTIC RESPONSE UNEXPECTED WITH DRUG SUBSTITUTION [None]
